FAERS Safety Report 14205847 (Version 1)
Quarter: 2017Q4

REPORT INFORMATION
  Report Type: Spontaneous
  Country: US (occurrence: US)
  Receive Date: 20171120
  Receipt Date: 20171120
  Transmission Date: 20180321
  Serious: No
  Sender: FDA-Public Use
  Company Number: US-MERZ NORTH AMERICA, INC.-17MRZ-00357

PATIENT
  Age: 67 Year
  Sex: Female

DRUGS (1)
  1. XEOMIN [Suspect]
     Active Substance: INCOBOTULINUMTOXINA
     Indication: SKIN COSMETIC PROCEDURE
     Dosage: 20 UNITS TO GLABELLA
     Dates: start: 20171027, end: 20171027

REACTIONS (6)
  - Fatigue [Not Recovered/Not Resolved]
  - Limb discomfort [Not Recovered/Not Resolved]
  - Chills [Not Recovered/Not Resolved]
  - Influenza like illness [Not Recovered/Not Resolved]
  - Muscular weakness [Not Recovered/Not Resolved]
  - Tinnitus [Not Recovered/Not Resolved]

NARRATIVE: CASE EVENT DATE: 20171027
